FAERS Safety Report 18318066 (Version 1)
Quarter: 2020Q3

REPORT INFORMATION
  Report Type: Spontaneous
  Country: US (occurrence: US)
  Receive Date: 20200925
  Receipt Date: 20200925
  Transmission Date: 20201103
  Serious: No
  Sender: FDA-Public Use
  Company Number: None

PATIENT
  Age: 30 Year
  Sex: Male
  Weight: 61.65 kg

DRUGS (1)
  1. CLONAZEPAM. [Suspect]
     Active Substance: CLONAZEPAM
     Indication: OBSESSIVE-COMPULSIVE DISORDER
     Dosage: ?          QUANTITY:60 TABLET(S);?
     Route: 048
     Dates: start: 20200903, end: 20200921

REACTIONS (16)
  - Diarrhoea [None]
  - Malaise [None]
  - Tremor [None]
  - Cold sweat [None]
  - Mydriasis [None]
  - Dyspnoea [None]
  - Dizziness [None]
  - Nausea [None]
  - Disturbance in attention [None]
  - Tunnel vision [None]
  - Hyperhidrosis [None]
  - Chills [None]
  - Erectile dysfunction [None]
  - Hyperventilation [None]
  - Anxiety [None]
  - Insomnia [None]

NARRATIVE: CASE EVENT DATE: 20200921
